FAERS Safety Report 15570636 (Version 1)
Quarter: 2018Q4

REPORT INFORMATION
  Report Type: Spontaneous
  Country: RU (occurrence: RU)
  Receive Date: 20181031
  Receipt Date: 20181031
  Transmission Date: 20190205
  Serious: Yes (Other)
  Sender: FDA-Public Use
  Company Number: RU-B. BRAUN MEDICAL INC.-2058266

PATIENT
  Age: 27 Year
  Sex: Male
  Weight: 45 kg

DRUGS (24)
  1. SODIUM CHLORIDE INJECTIONS USP 0264-7800-00 0264-7800-10 [Suspect]
     Active Substance: SODIUM CHLORIDE
  2. MAGNESIUM SULFATE. [Concomitant]
     Active Substance: MAGNESIUM SULFATE
  3. DIPHENHYDRAMINE. [Concomitant]
     Active Substance: DIPHENHYDRAMINE
  4. CHLOROPYRAMINE [Concomitant]
     Active Substance: CHLOROPYRAMINE
  5. PYRIDOXINE [Concomitant]
     Active Substance: PYRIDOXINE
  6. MULTIVITAMINS [Concomitant]
     Active Substance: VITAMINS
  7. KANEPHRON [Concomitant]
  8. THIAMINE. [Concomitant]
     Active Substance: THIAMINE
  9. IPRATROPIUM BROMIDE. [Concomitant]
     Active Substance: IPRATROPIUM BROMIDE
  10. CEREPRO [Concomitant]
  11. METOCLOPRAMIDE. [Concomitant]
     Active Substance: METOCLOPRAMIDE
  12. TSITOFLAVIN [Concomitant]
  13. BACLOFEN. [Concomitant]
     Active Substance: BACLOFEN
  14. LACTULOSE. [Concomitant]
     Active Substance: LACTULOSE
  15. DEXTROSE. [Concomitant]
     Active Substance: DEXTROSE
  16. OMEPRAZOLE. [Concomitant]
     Active Substance: OMEPRAZOLE
  17. ATARAX [Concomitant]
     Active Substance: HYDROXYZINE HYDROCHLORIDE
  18. METAMIZOLE SODIUM [Concomitant]
     Active Substance: METAMIZOLE SODIUM
  19. CEFTRIAXONE. [Concomitant]
     Active Substance: CEFTRIAXONE
  20. WARFARIN [Concomitant]
     Active Substance: WARFARIN
  21. FLUCONAZOLE. [Concomitant]
     Active Substance: FLUCONAZOLE
  22. AMBROXOL [Concomitant]
     Active Substance: AMBROXOL
  23. INSULIN [Concomitant]
     Active Substance: INSULIN NOS
  24. CIPROFLOXACIN. [Concomitant]
     Active Substance: CIPROFLOXACIN

REACTIONS (2)
  - Rash papular [None]
  - Rash erythematous [None]
